FAERS Safety Report 9283982 (Version 1)
Quarter: 2013Q2

REPORT INFORMATION
  Report Type: Spontaneous
  Country: US (occurrence: None)
  Receive Date: 20130503
  Receipt Date: 20130503
  Transmission Date: 20140414
  Serious: Yes (Hospitalization)
  Sender: FDA-Public Use
  Company Number: 2013US001533

PATIENT
  Age: 59 Year
  Sex: Female

DRUGS (2)
  1. ICLUSIG [Suspect]
     Indication: ACUTE MYELOID LEUKAEMIA
     Route: 048
     Dates: start: 20130418
  2. HYDROXYUREA [Suspect]

REACTIONS (1)
  - Leukocytosis [None]
